FAERS Safety Report 7267729-1 (Version None)
Quarter: 2011Q1

REPORT INFORMATION
  Report Type: 
  Country: None (occurrence: None)
  Receive Date: 20110201
  Receipt Date: 20110121
  Transmission Date: 20110831
  Serious: Yes (Hospitalization)
  Sender: FDA-Public Use
  Company Number: IT-ROCHE-754684

PATIENT
  Sex: Male

DRUGS (7)
  1. AVASTIN [Suspect]
     Indication: COLON CANCER STAGE II
     Dosage: FREQUENCY REPORTED AS CYCLE
     Route: 042
     Dates: start: 20100810, end: 20100826
  2. IRINOTECAN HCL [Concomitant]
     Indication: COLON CANCER
     Dosage: FREQUENCY UNKNOWN DRUG NAME REPORTED AS: IRINOTECAN ACCORD HEALTHCARE.
     Route: 042
     Dates: start: 20100810, end: 20100826
  3. ZANTAC [Concomitant]
     Indication: UNEVALUABLE EVENT
     Route: 042
     Dates: start: 20100810, end: 20100826
  4. FLUOROURACIL [Concomitant]
     Indication: COLON CANCER
     Dosage: FREQUENCY UNKNOWN, DRUG NAME REPORTED AS: FLUOROURACILE WINTHROP.
     Route: 042
     Dates: start: 20100810, end: 20100826
  5. DEXAMETHASONE [Concomitant]
     Route: 065
  6. KYTRIL [Concomitant]
     Dosage: DOSING AMOUNT AND FREQUENCY UNKNOWN
     Route: 042
  7. LEDERFOLIN [Concomitant]
     Dosage: DRUG REPORTED AS CALCIUM FOLINATE/ LEDERFOLIN
     Route: 042

REACTIONS (2)
  - CARDIAC FAILURE [None]
  - HYPOTENSION [None]
